FAERS Safety Report 7757664-4 (Version None)
Quarter: 2011Q3

REPORT INFORMATION
  Report Type: 
  Country: None (occurrence: None)
  Receive Date: 20110916
  Receipt Date: 20110907
  Transmission Date: 20111222
  Serious: Yes (Other)
  Sender: FDA-Public Use
  Company Number: US-ASTRAZENECA-2011SE53676

PATIENT
  Age: 50 Year
  Sex: Female
  Weight: 76.2 kg

DRUGS (10)
  1. LEMECTAL [Concomitant]
     Indication: CONVULSION
     Route: 048
     Dates: start: 20080101
  2. VICODIN [Concomitant]
     Indication: PAIN
     Route: 048
     Dates: start: 20080101
  3. PROMETHAZINE [Concomitant]
     Indication: NAUSEA
     Route: 048
  4. VICODIN [Concomitant]
     Indication: FIBROMYALGIA
     Route: 048
     Dates: start: 20080101
  5. NEURONTIN [Concomitant]
     Indication: CONVULSION
     Route: 048
     Dates: start: 20020101
  6. NEURONTIN [Concomitant]
     Indication: BIPOLAR DISORDER
     Route: 048
     Dates: start: 20020101
  7. SEROQUEL [Suspect]
     Indication: BIPOLAR DISORDER
     Route: 048
     Dates: start: 19990101
  8. DIAZEOPAM [Concomitant]
     Indication: ANXIETY
     Route: 048
     Dates: start: 19990101
  9. RISTERIEONE [Concomitant]
     Route: 048
  10. AMBEAN [Concomitant]
     Indication: SLEEP TERROR

REACTIONS (3)
  - CONVULSION [None]
  - ROAD TRAFFIC ACCIDENT [None]
  - EPILEPSY [None]
